FAERS Safety Report 6177699-5 (Version None)
Quarter: 2009Q2

REPORT INFORMATION
  Report Type: 
  Country: None (occurrence: None)
  Receive Date: 20090504
  Receipt Date: 20090428
  Transmission Date: 20091009
  Serious: No
  Sender: FDA-Public Use
  Company Number: US-B.I. PHARMACEUTICALS,INC./RIDGEFIELD-2009-BP-05378BP

PATIENT
  Sex: Male

DRUGS (9)
  1. SPIRIVA [Suspect]
     Indication: DYSPNOEA
     Dosage: 18MCG
     Route: 055
     Dates: start: 20090320, end: 20090325
  2. ASPIRIN [Concomitant]
     Indication: CARDIAC OPERATION
     Dosage: 81MG
     Route: 048
     Dates: start: 20060101
  3. LISINOPRIL [Concomitant]
     Dosage: 10MG
     Route: 048
     Dates: start: 20060101
  4. FUROSEMIDE [Concomitant]
     Dosage: 40MG
     Route: 048
     Dates: start: 20060101
  5. DIGOXIN [Concomitant]
     Route: 048
     Dates: start: 20060101
  6. CARDEDILOL [Concomitant]
     Dosage: 12.4MG
     Route: 048
     Dates: start: 20060101
  7. POTASSIUM CHLORIDE [Concomitant]
     Dosage: 40MEQ
     Route: 048
     Dates: start: 20060101
  8. ALPHAG P [Concomitant]
     Indication: GLAUCOMA
     Route: 031
     Dates: start: 20060101
  9. TIMOLOL MALEATE [Concomitant]
     Indication: GLAUCOMA
     Route: 031
     Dates: start: 20060101

REACTIONS (2)
  - RASH ERYTHEMATOUS [None]
  - RASH PRURITIC [None]
